FAERS Safety Report 15614848 (Version 1)
Quarter: 2018Q4

REPORT INFORMATION
  Report Type: Spontaneous
  Country: US (occurrence: US)
  Receive Date: 20181114
  Receipt Date: 20181114
  Transmission Date: 20190205
  Serious: Yes (Other)
  Sender: FDA-Public Use
  Company Number: US-AMGEN-USASP2018158759

PATIENT
  Sex: Male
  Weight: 90.71 kg

DRUGS (19)
  1. FINASTERIDE. [Concomitant]
     Active Substance: FINASTERIDE
  2. VITAMIN D [Concomitant]
     Active Substance: CHOLECALCIFEROL
  3. TRAMADOL. [Concomitant]
     Active Substance: TRAMADOL
  4. OCTREOTIDE. [Concomitant]
     Active Substance: OCTREOTIDE
  5. XGEVA [Suspect]
     Active Substance: DENOSUMAB
     Indication: BONE DISORDER
     Dosage: UNK UNK, QMO
     Route: 065
  6. TRAZODONE [Concomitant]
     Active Substance: TRAZODONE HYDROCHLORIDE
  7. SOMNAPURE [Concomitant]
  8. LISINOPRIL. [Concomitant]
     Active Substance: LISINOPRIL
  9. NORCO [Concomitant]
     Active Substance: ACETAMINOPHEN\HYDROCODONE BITARTRATE
  10. BORAGE FES [Concomitant]
  11. TRESIBA [Concomitant]
     Active Substance: INSULIN DEGLUDEC
  12. XARELTO [Concomitant]
     Active Substance: RIVAROXABAN
  13. FISH OIL [Concomitant]
     Active Substance: FISH OIL
  14. FLAXSEED [Concomitant]
     Active Substance: FLAX SEED
  15. METFORMIN [Concomitant]
     Active Substance: METFORMIN HYDROCHLORIDE
  16. SUTENT [Suspect]
     Active Substance: SUNITINIB MALATE
     Indication: PRODUCT USED FOR UNKNOWN INDICATION
     Dosage: 37.5 MG, QD
     Route: 065
     Dates: start: 201804
  17. METOPROLOL. [Concomitant]
     Active Substance: METOPROLOL
  18. PRAVASTATIN. [Concomitant]
     Active Substance: PRAVASTATIN
  19. LANREOTIDE [Concomitant]
     Active Substance: LANREOTIDE
     Indication: DIARRHOEA

REACTIONS (15)
  - Pancreatic carcinoma metastatic [Unknown]
  - Epistaxis [Unknown]
  - Hypertension [Unknown]
  - Dysgeusia [Unknown]
  - Fatigue [Unknown]
  - Hair colour changes [Unknown]
  - Pain [Recovering/Resolving]
  - Intervertebral disc degeneration [Unknown]
  - Pain of skin [Unknown]
  - Dry mouth [Unknown]
  - Weight decreased [Unknown]
  - Oral pain [Unknown]
  - Lip dry [Unknown]
  - Arthritis [Unknown]
  - Diarrhoea [Unknown]
